FAERS Safety Report 10059477 (Version 1)
Quarter: 2014Q2

REPORT INFORMATION
  Report Type: Spontaneous
  Country: FR (occurrence: FR)
  Receive Date: 20140404
  Receipt Date: 20140404
  Transmission Date: 20141212
  Serious: Yes (Hospitalization)
  Sender: FDA-Public Use
  Company Number: FR-PFIZER INC-2014092182

PATIENT
  Age: 92 Year
  Sex: Female

DRUGS (7)
  1. DALACINE [Suspect]
     Dosage: 600 MG, DAILY
     Route: 048
     Dates: start: 20140122, end: 20140127
  2. CLAMOXYL [Concomitant]
     Dosage: UNK
     Route: 048
     Dates: start: 20140127, end: 20140130
  3. FUROSEMIDE [Concomitant]
     Dosage: UNK
  4. PARACETAMOL [Concomitant]
     Dosage: UNK
  5. MINISINTROM [Concomitant]
     Dosage: UNK
  6. KARDEGIC [Concomitant]
     Dosage: UNK
  7. INEXIUM /01479302/ [Concomitant]
     Dosage: UNK

REACTIONS (4)
  - Rash scarlatiniform [Recovered/Resolved]
  - Erythema [Recovered/Resolved]
  - Pruritus [Unknown]
  - Drug hypersensitivity [Unknown]
